FAERS Safety Report 17168401 (Version 1)
Quarter: 2019Q4

REPORT INFORMATION
  Report Type: Spontaneous
  Country: US (occurrence: US)
  Receive Date: 20191125
  Receipt Date: 20191125
  Transmission Date: 20200122
  Serious: No
  Sender: FDA-Public Use
  Company Number: None

PATIENT
  Age: 55 Year
  Sex: Female

DRUGS (1)
  1. CAPECITABINE TAB 500MG [Suspect]
     Active Substance: CAPECITABINE
     Route: 048
     Dates: start: 20181021

REACTIONS (5)
  - Fatigue [None]
  - Skin exfoliation [None]
  - Paraesthesia [None]
  - Diarrhoea [None]
  - Swelling [None]

NARRATIVE: CASE EVENT DATE: 20181021
